FAERS Safety Report 4702603-3 (Version None)
Quarter: 2005Q2

REPORT INFORMATION
  Report Type: 
  Country: None (occurrence: None)
  Receive Date: 20050629
  Receipt Date: 20050224
  Transmission Date: 20051028
  Serious: Yes (Other)
  Sender: FDA-Public Use
  Company Number: US-BRISTOL-MYERS SQUIBB COMPANY-12877445

PATIENT
  Age: 59 Year
  Sex: Female

DRUGS (20)
  1. CETUXIMAB [Suspect]
     Indication: NON-SMALL CELL LUNG CANCER
     Route: 042
     Dates: start: 20050214, end: 20050214
  2. CARBOPLATIN [Suspect]
     Indication: NON-SMALL CELL LUNG CANCER
     Dosage: AUC 6(AREA UNDER THE CURVE)
     Route: 042
     Dates: start: 20050131, end: 20050131
  3. FLONASE [Concomitant]
  4. ACTONEL [Concomitant]
  5. PREMARIN [Concomitant]
     Route: 067
  6. LEXAPRO [Concomitant]
  7. CALCIUM GLUCONATE [Concomitant]
  8. MULTI-VITAMIN [Concomitant]
     Dates: start: 20050120
  9. NORVASC [Concomitant]
  10. BENICAR [Concomitant]
  11. TRAZODONE HCL [Concomitant]
  12. FISH OIL [Concomitant]
     Dates: start: 20050120
  13. GLUCOSAMINE [Concomitant]
     Dates: start: 20050120
  14. CHONDROITIN [Concomitant]
     Dates: start: 20050120
  15. COMPAZINE [Concomitant]
     Dates: start: 20050131, end: 20050207
  16. ZOFRAN [Concomitant]
     Dates: start: 20050207
  17. XANAX [Concomitant]
     Dates: start: 20050214
  18. BENADRYL [Concomitant]
     Dates: start: 20050124
  19. ANZEMET [Concomitant]
     Dates: start: 20050124
  20. DECADRON [Concomitant]
     Dates: start: 20050124

REACTIONS (1)
  - HEPATITIS B [None]
